FAERS Safety Report 24630881 (Version 1)
Quarter: 2024Q4

REPORT INFORMATION
  Report Type: Spontaneous
  Country: US (occurrence: None)
  Receive Date: 20241116
  Receipt Date: 20241116
  Transmission Date: 20250114
  Serious: Yes (unspecified)
  Sender: Public
  Company Number: None

PATIENT
  Age: 19 Year
  Sex: Female
  Weight: 67.5 kg

DRUGS (1)
  1. CEFTRIAXONE [Suspect]
     Active Substance: CEFTRIAXONE
     Indication: Pyelonephritis
     Dosage: OTHER FREQUENCY : ONCE;?
     Route: 030
     Dates: start: 20240925, end: 20240925

REACTIONS (3)
  - Flank pain [None]
  - Urinary tract infection [None]
  - Expired product administered [None]

NARRATIVE: CASE EVENT DATE: 20240925
